FAERS Safety Report 11807969 (Version 1)
Quarter: 2015Q4

REPORT INFORMATION
  Report Type: Other
  Country: US (occurrence: US)
  Receive Date: 20151207
  Receipt Date: 20151207
  Transmission Date: 20160305
  Serious: Yes (Other)
  Sender: FDA-Public Use
  Company Number: US-DEP_13170_2015

PATIENT
  Age: 44 Year
  Sex: Male
  Weight: 92 kg

DRUGS (9)
  1. DIAZEPAM. [Concomitant]
     Active Substance: DIAZEPAM
     Indication: PAIN
     Route: 048
     Dates: start: 201408
  2. BUTRANS [Concomitant]
     Active Substance: BUPRENORPHINE
     Indication: PAIN
     Route: 062
     Dates: start: 201408
  3. NUCYNTA [Suspect]
     Active Substance: TAPENTADOL HYDROCHLORIDE
     Indication: MENISCUS INJURY
     Route: 048
     Dates: start: 201505, end: 2015
  4. DIAZEPAM. [Concomitant]
     Active Substance: DIAZEPAM
     Indication: ROTATOR CUFF SYNDROME
     Route: 048
     Dates: start: 201408
  5. NUCYNTA [Suspect]
     Active Substance: TAPENTADOL HYDROCHLORIDE
     Indication: ROTATOR CUFF SYNDROME
     Route: 048
     Dates: start: 201408, end: 201505
  6. NUCYNTA [Suspect]
     Active Substance: TAPENTADOL HYDROCHLORIDE
     Indication: PAIN
     Route: 048
     Dates: start: 2015
  7. BUTRANS [Concomitant]
     Active Substance: BUPRENORPHINE
     Indication: ROTATOR CUFF SYNDROME
     Route: 062
     Dates: start: 201408
  8. BUTRANS [Concomitant]
     Active Substance: BUPRENORPHINE
     Indication: MENISCUS INJURY
     Route: 062
     Dates: start: 201408
  9. DIAZEPAM. [Concomitant]
     Active Substance: DIAZEPAM
     Indication: MENISCUS INJURY
     Route: 048
     Dates: start: 201408

REACTIONS (2)
  - Surgery [Recovered/Resolved]
  - Nephrolithiasis [Not Recovered/Not Resolved]

NARRATIVE: CASE EVENT DATE: 201505
